FAERS Safety Report 4365008-3 (Version None)
Quarter: 2004Q2

REPORT INFORMATION
  Report Type: 
  Country: None (occurrence: None)
  Receive Date: 20040521
  Receipt Date: 20040513
  Transmission Date: 20050107
  Serious: Yes (Hospitalization)
  Sender: FDA-Public Use
  Company Number: 2004213366US

PATIENT
  Sex: Female

DRUGS (1)
  1. DIDREX [Suspect]
     Dosage: 50 MG, TID

REACTIONS (4)
  - DIZZINESS [None]
  - HEART RATE INCREASED [None]
  - HYPERTHYROIDISM [None]
  - LOSS OF CONSCIOUSNESS [None]
